FAERS Safety Report 9064862 (Version 1)
Quarter: 2013Q1

REPORT INFORMATION
  Report Type: Spontaneous
  Country: US (occurrence: US)
  Receive Date: 20130130
  Receipt Date: 20130130
  Transmission Date: 20140127
  Serious: No
  Sender: FDA-Public Use
  Company Number: US-BAYER-2013-008177

PATIENT
  Age: 58 Year
  Sex: Female
  Weight: 59.86 kg

DRUGS (2)
  1. ALEVE CAPLET/TABLET,MIDOL EXTENDED RELIEF CAPLET [Suspect]
     Dosage: UNK
     Route: 048
     Dates: start: 20130107, end: 20130108
  2. MULTIVITAMIN [Concomitant]

REACTIONS (2)
  - Diarrhoea [None]
  - Drug ineffective [None]
